FAERS Safety Report 14466799 (Version 1)
Quarter: 2018Q1

REPORT INFORMATION
  Report Type: Other
  Country: US (occurrence: US)
  Receive Date: 20180131
  Receipt Date: 20180131
  Transmission Date: 20180509
  Serious: No
  Sender: FDA-Public Use
  Company Number: US-ACORDA-ACO_137582_2017

PATIENT
  Sex: Female

DRUGS (1)
  1. AMPYRA [Suspect]
     Active Substance: DALFAMPRIDINE
     Dosage: 10 MG, Q 12 HRS
     Route: 048
     Dates: start: 20170412, end: 20170412

REACTIONS (4)
  - Lip swelling [None]
  - Hypoaesthesia oral [Unknown]
  - Paraesthesia oral [Unknown]
  - Swollen tongue [Unknown]
